FAERS Safety Report 23755441 (Version 1)
Quarter: 2024Q2

REPORT INFORMATION
  Report Type: Spontaneous
  Country: US (occurrence: US)
  Receive Date: 20240418
  Receipt Date: 20240418
  Transmission Date: 20240716
  Serious: No
  Sender: FDA-Public Use
  Company Number: US-GSKCCFUS-Case-01982684_AE-110082

PATIENT
  Age: 61 Year
  Sex: Female

DRUGS (2)
  1. INCRUSE ELLIPTA [Suspect]
     Active Substance: UMECLIDINIUM BROMIDE
     Indication: Product used for unknown indication
     Dosage: 62.5 ?G, 1D
     Route: 055
     Dates: start: 20240403
  2. ADVAIR DISKUS [Suspect]
     Active Substance: FLUTICASONE PROPIONATE\SALMETEROL XINAFOATE
     Indication: Product used for unknown indication
     Dosage: UNK,500/50 MCG
     Route: 055
     Dates: end: 20240403

REACTIONS (3)
  - Cough [Recovered/Resolved]
  - Laryngitis [Recovered/Resolved]
  - Fungal pharyngitis [Recovered/Resolved]

NARRATIVE: CASE EVENT DATE: 20240403
